FAERS Safety Report 15991592 (Version 3)
Quarter: 2019Q1

REPORT INFORMATION
  Report Type: Spontaneous
  Country: JP (occurrence: JP)
  Receive Date: 20190221
  Receipt Date: 20190311
  Transmission Date: 20190418
  Serious: Yes (Death)
  Sender: FDA-Public Use
  Company Number: JP-ALLERGAN-1905958US

PATIENT
  Sex: Female

DRUGS (8)
  1. INVEGA [Concomitant]
     Active Substance: PALIPERIDONE
     Dosage: 12 MG, QD
     Route: 065
     Dates: start: 20181029
  2. INVEGA [Concomitant]
     Active Substance: PALIPERIDONE
     Dosage: 9 MG, QD
     Route: 065
     Dates: start: 20181107
  3. INVEGA [Concomitant]
     Active Substance: PALIPERIDONE
     Dosage: 6 MG, QD
     Route: 065
     Dates: start: 20190107, end: 20190113
  4. YOKUKANSAN [Concomitant]
     Active Substance: HERBALS
     Dosage: UNK
     Route: 065
     Dates: start: 20181011, end: 20190113
  5. INVEGA [Concomitant]
     Active Substance: PALIPERIDONE
     Dosage: UNK
     Route: 065
     Dates: start: 201808
  6. VITAMIN E [Concomitant]
     Active Substance: .ALPHA.-TOCOPHEROL
     Dosage: UNK
     Route: 065
     Dates: start: 20181011, end: 20190213
  7. ZOPICLONE [Concomitant]
     Active Substance: ZOPICLONE
     Dosage: UNK
     Route: 065
     Dates: start: 20181029, end: 20190113
  8. ASENAPINE MALEATE - BP [Suspect]
     Active Substance: ASENAPINE MALEATE
     Indication: SCHIZOPHRENIA
     Dosage: 5 MG, BID
     Route: 060
     Dates: start: 20190107, end: 20190113

REACTIONS (2)
  - Completed suicide [Fatal]
  - Dysgeusia [Unknown]

NARRATIVE: CASE EVENT DATE: 201901
